FAERS Safety Report 18432109 (Version 1)
Quarter: 2020Q4

REPORT INFORMATION
  Report Type: Spontaneous
  Country: US (occurrence: US)
  Receive Date: 20201027
  Receipt Date: 20201027
  Transmission Date: 20210114
  Serious: No
  Sender: FDA-Public Use
  Company Number: None

PATIENT
  Age: 34 Year
  Sex: Female
  Weight: 72 kg

DRUGS (9)
  1. BUPROPN HCL X 150 MG TABLETS [Concomitant]
  2. MILK THISTLE EXTRACT 250MG CAPSULES [Concomitant]
  3. NP THYROID 90MG TABLETS [Concomitant]
  4. PROPRANOLOL ER 60 MG CAPSULES [Concomitant]
  5. DEXTROAMPHET SACCHARAT, AMPHET ASPARTATE, DEXTROAMPHET SULFATE AND AMPHET SULFAT [Suspect]
     Active Substance: AMPHETAMINE ASPARTATE\AMPHETAMINE SULFATE\DEXTROAMPHETAMINE SACCHARATE\DEXTROAMPHETAMINE SULFATE
     Indication: ATTENTION DEFICIT HYPERACTIVITY DISORDER
     Dosage: ?          QUANTITY:30 CAPSULE(S);?
     Route: 048
  6. MULTIVITAMIN W/O IRON [Concomitant]
  7. DEXTROAMPHET SACCHARAT, AMPHET ASPARTATE, DEXTROAMPHET SULFATE AND AMPHET SULFAT [Suspect]
     Active Substance: AMPHETAMINE ASPARTATE\AMPHETAMINE SULFATE\DEXTROAMPHETAMINE SACCHARATE\DEXTROAMPHETAMINE SULFATE
     Indication: FATIGUE
     Dosage: ?          QUANTITY:30 CAPSULE(S);?
     Route: 048
  8. AMPHET/DEXTR ER 25MG CAPSULES [Concomitant]
  9. ALBUTEROL INHALER PRN [Concomitant]

REACTIONS (8)
  - Impaired driving ability [None]
  - Memory impairment [None]
  - Mental impairment [None]
  - Product tampering [None]
  - Drug ineffective [None]
  - Fatigue [None]
  - Product physical issue [None]
  - Impaired work ability [None]

NARRATIVE: CASE EVENT DATE: 20201025
